FAERS Safety Report 6441354-4 (Version None)
Quarter: 2009Q4

REPORT INFORMATION
  Report Type: 
  Country: None (occurrence: None)
  Receive Date: 20091116
  Receipt Date: 20091111
  Transmission Date: 20100525
  Serious: Yes (Other)
  Sender: FDA-Public Use
  Company Number: A0816866A

PATIENT
  Sex: Female

DRUGS (2)
  1. NICORETTE [Suspect]
     Route: 002
  2. CHANTIX [Suspect]
     Route: 048

REACTIONS (2)
  - ABNORMAL DREAMS [None]
  - MYOCARDIAL INFARCTION [None]
